FAERS Safety Report 6147652-6 (Version None)
Quarter: 2009Q2

REPORT INFORMATION
  Report Type: 
  Country: None (occurrence: None)
  Receive Date: 20090402
  Receipt Date: 20080609
  Transmission Date: 20091009
  Serious: Yes (Other)
  Sender: FDA-Public Use
  Company Number: US-WYE-H04448108

PATIENT
  Age: 60 Year
  Sex: Male

DRUGS (3)
  1. ALAVERT [Suspect]
     Indication: HYPERSENSITIVITY
     Dosage: 1 TABLET 1X PER 1 DAY, ORAL
     Route: 048
     Dates: start: 20080609
  2. WELLBUTRIN [Concomitant]
  3. CYMBALTA [Concomitant]

REACTIONS (1)
  - DIZZINESS [None]
